FAERS Safety Report 11272316 (Version 2)
Quarter: 2015Q3

REPORT INFORMATION
  Report Type: Spontaneous
  Country: US (occurrence: None)
  Receive Date: 20150713
  Receipt Date: 20150713
  Transmission Date: 20151125
  Serious: No
  Sender: FDA-Public Use
  Company Number: 2014-00013

PATIENT
  Age: 53 Year
  Sex: Female
  Weight: 94.35 kg

DRUGS (2)
  1. ZICAM COLD REMEDY RAPIDMELTS [Suspect]
     Active Substance: ZINC ACETATE ANHYDROUS\ZINC GLUCONATE
     Dosage: 1 RAPIDMELT ORALLY EVERY 3 HOUR
     Route: 048
     Dates: start: 20140122, end: 20140123
  2. UNSPECIFIED ANTI-HYPERTENSIVE MEDICATION [Concomitant]

REACTIONS (1)
  - Ageusia [None]

NARRATIVE: CASE EVENT DATE: 20140123
